FAERS Safety Report 6864235-0 (Version None)
Quarter: 2010Q3

REPORT INFORMATION
  Report Type: 
  Country: None (occurrence: None)
  Receive Date: 20100720
  Receipt Date: 20100712
  Transmission Date: 20110219
  Serious: Yes (Hospitalization, Congenital Anomaly)
  Sender: FDA-Public Use
  Company Number: 8054410

PATIENT
  Sex: Male
  Weight: 3.9463 kg

DRUGS (4)
  1. KEPPRA [Suspect]
     Dosage: (2000 MG BID TRANSPLACENTAL)
     Route: 064
     Dates: end: 20090529
  2. ZYRTEC [Concomitant]
  3. LAMICTAL [Concomitant]
  4. MULTIVITAMIN /01229101/ [Concomitant]

REACTIONS (2)
  - EXOMPHALOS [None]
  - MATERNAL DRUGS AFFECTING FOETUS [None]
